FAERS Safety Report 6020274-3 (Version None)
Quarter: 2008Q4

REPORT INFORMATION
  Report Type: 
  Country: None (occurrence: None)
  Receive Date: 20081226
  Receipt Date: 20081218
  Transmission Date: 20090506
  Serious: Yes (Hospitalization)
  Sender: FDA-Public Use
  Company Number: PHHY2008NL32459

PATIENT
  Sex: Female

DRUGS (7)
  1. CARBAMAZEPINE [Suspect]
     Dosage: 200 MG, QID
  2. DEPAKENE [Suspect]
     Dosage: 300 MG, QID
  3. FENOBARBITAL [Suspect]
     Indication: EPILEPSY
     Dosage: 50 MG, BID
  4. FENOBARBITAL [Suspect]
     Dosage: 25 MG, QD
  5. AUGMENTIN                               /SCH/ [Concomitant]
     Dosage: 625 MG, TID
  6. CLINDAMYCIN [Concomitant]
     Dosage: 300 MG, BID
  7. CLINDAMYCIN [Concomitant]
     Dosage: 600 MG, TID

REACTIONS (2)
  - COMA [None]
  - HYPERAMMONAEMIA [None]
